FAERS Safety Report 4331320-7 (Version None)
Quarter: 2004Q1

REPORT INFORMATION
  Report Type: 
  Country: None (occurrence: None)
  Receive Date: 20040329
  Receipt Date: 20040316
  Transmission Date: 20041129
  Serious: Yes (Hospitalization)
  Sender: FDA-Public Use
  Company Number: 200403560

PATIENT
  Age: 4 Year
  Sex: Female

DRUGS (1)
  1. CHILDREN'S MOTRIN COLD [Suspect]
     Dosage: 2400 MG, ONCE

REACTIONS (4)
  - ACCIDENTAL EXPOSURE [None]
  - JAUNDICE [None]
  - STRABISMUS [None]
  - VISION BLURRED [None]
